FAERS Safety Report 7685680-X (Version None)
Quarter: 2011Q3

REPORT INFORMATION
  Report Type: 
  Country: None (occurrence: None)
  Receive Date: 20110815
  Receipt Date: 20110815
  Transmission Date: 20111222
  Serious: No
  Sender: FDA-Public Use
  Company Number: None

PATIENT
  Age: 54 Year
  Sex: Female
  Weight: 79.3795 kg

DRUGS (1)
  1. OPTIRAY 350 [Suspect]
     Indication: COMPUTERISED TOMOGRAM
     Dosage: 75 ML ONCE IV
     Route: 042
     Dates: start: 20110621

REACTIONS (4)
  - POLLAKIURIA [None]
  - FLATULENCE [None]
  - ABDOMINAL PAIN UPPER [None]
  - GASTRIC DISORDER [None]
